FAERS Safety Report 8317722-2 (Version None)
Quarter: 2012Q2

REPORT INFORMATION
  Report Type: 
  Country: None (occurrence: None)
  Receive Date: 20120427
  Receipt Date: 20120419
  Transmission Date: 20120825
  Serious: Yes (Other)
  Sender: FDA-Public Use
  Company Number: US-BAYER-2012-038347

PATIENT
  Age: 45 Year
  Sex: Female

DRUGS (2)
  1. MIRENA [Suspect]
     Dosage: 20 MCG/24HR, CONT
     Route: 015
     Dates: end: 20120417
  2. MIRENA [Suspect]
     Dosage: UNK

REACTIONS (4)
  - POST PROCEDURAL HAEMORRHAGE [None]
  - PAIN [None]
  - GENITAL HAEMORRHAGE [None]
  - PELVIC PAIN [None]
